FAERS Safety Report 9630215 (Version 1)
Quarter: 2013Q4

REPORT INFORMATION
  Report Type: Spontaneous
  Country: RS (occurrence: RS)
  Receive Date: 20131017
  Receipt Date: 20131017
  Transmission Date: 20140711
  Serious: Yes (Hospitalization, Other)
  Sender: FDA-Public Use
  Company Number: RS-ABBVIE-13P-163-1157599-00

PATIENT
  Age: 61 Year
  Sex: Male
  Weight: 83 kg

DRUGS (6)
  1. VALPROIC ACID [Suspect]
     Indication: BIPOLAR DISORDER
     Route: 048
  2. SM-13496 [Suspect]
     Indication: BIPOLAR DISORDER
     Route: 048
     Dates: end: 20121229
  3. LURASIDONE [Suspect]
     Indication: BIPOLAR I DISORDER
  4. LITHIUM [Suspect]
     Indication: BIPOLAR I DISORDER
  5. DUROFILIN [Concomitant]
     Indication: ASTHMA
     Dates: start: 2000, end: 20130104
  6. VERAPAMIL [Concomitant]
     Indication: PRODUCT USED FOR UNKNOWN INDICATION
     Dates: start: 2005, end: 20130104

REACTIONS (2)
  - Asthma [Recovered/Resolved with Sequelae]
  - Respiratory disorder [Unknown]
